FAERS Safety Report 7555146-6 (Version None)
Quarter: 2011Q2

REPORT INFORMATION
  Report Type: 
  Country: None (occurrence: None)
  Receive Date: 20110617
  Receipt Date: 20110607
  Transmission Date: 20111010
  Serious: Yes (Other)
  Sender: FDA-Public Use
  Company Number: BE-UCBSA-034703

PATIENT
  Age: 71 Year
  Sex: Male

DRUGS (2)
  1. DEPAKENE [Suspect]
  2. KEPPRA [Suspect]
     Dosage: 1000MG IN THE EVENING AND 500 MG IN THE MORNING

REACTIONS (6)
  - GRAND MAL CONVULSION [None]
  - NAUSEA [None]
  - SOMNOLENCE [None]
  - QUALITY OF LIFE DECREASED [None]
  - VISUAL IMPAIRMENT [None]
  - TREATMENT NONCOMPLIANCE [None]
